FAERS Safety Report 18071581 (Version 2)
Quarter: 2020Q3

REPORT INFORMATION
  Report Type: Spontaneous
  Country: US (occurrence: US)
  Receive Date: 20200727
  Receipt Date: 20200828
  Transmission Date: 20201103
  Serious: No
  Sender: FDA-Public Use
  Company Number: US-ASTRAZENECA-2020SE90501

PATIENT
  Age: 24993 Day
  Sex: Female
  Weight: 111.1 kg

DRUGS (5)
  1. BYDUREON [Suspect]
     Active Substance: EXENATIDE
     Indication: TYPE 2 DIABETES MELLITUS
     Route: 058
  2. NOVOLIN NOS [Concomitant]
     Active Substance: INSULIN HUMAN
     Indication: DIABETES MELLITUS
     Dosage: VARIES BETWEEN 10 AND 16 UNITS THREE TIMES A DAY ?PROBABLY 3 YEARS
  3. NOVOLOG [Concomitant]
     Active Substance: INSULIN ASPART
     Indication: DIABETES MELLITUS
     Dosage: ONCE A DAY IN THE MORNING 14 UNITS AND ALSO TAKEN AT NIGHT DEPENDING ON IF BLOOD SUGAR IS HIGH SH...
  4. METFORMIN ER [Concomitant]
     Active Substance: METFORMIN HYDROCHLORIDE
     Indication: DIABETES MELLITUS
     Route: 048
     Dates: start: 2002
  5. BYDUREON [Suspect]
     Active Substance: EXENATIDE
     Indication: TYPE 2 DIABETES MELLITUS
     Route: 058
     Dates: start: 20200404, end: 20200529

REACTIONS (7)
  - Product dose omission issue [Unknown]
  - Abdominal pain [Recovered/Resolved]
  - Injection site reaction [Unknown]
  - Injection site nodule [Not Recovered/Not Resolved]
  - Constipation [Recovering/Resolving]
  - Nausea [Recovered/Resolved]
  - Abdominal discomfort [Recovered/Resolved]

NARRATIVE: CASE EVENT DATE: 20200414
